FAERS Safety Report 8425903-2 (Version None)
Quarter: 2012Q2

REPORT INFORMATION
  Report Type: 
  Country: None (occurrence: None)
  Receive Date: 20120611
  Receipt Date: 20120605
  Transmission Date: 20120825
  Serious: Yes (Other)
  Sender: FDA-Public Use
  Company Number: US-JNJFOC-20120412107

PATIENT
  Sex: Female
  Weight: 99.79 kg

DRUGS (9)
  1. OTHER THERAPEUTIC PRODUCTS [Concomitant]
     Indication: SLEEP DISORDER
     Route: 065
  2. STELARA [Suspect]
     Route: 058
     Dates: start: 20100312, end: 20120424
  3. ALBUTEROL [Concomitant]
     Indication: ASTHMA
     Route: 065
  4. STELARA [Suspect]
     Indication: PSORIASIS
     Route: 058
     Dates: start: 20120430
  5. LOESTRIN 1.5/30 [Concomitant]
     Indication: HORMONE REPLACEMENT THERAPY
     Route: 065
  6. LIDODERM [Concomitant]
     Indication: PAIN
     Route: 065
  7. PREVACID [Concomitant]
     Indication: GASTROOESOPHAGEAL REFLUX DISEASE
     Route: 065
  8. FLEXERIL [Concomitant]
     Indication: PAIN
     Route: 065
  9. SYMBICORT [Concomitant]
     Indication: ASTHMA
     Route: 065

REACTIONS (2)
  - NEUROPATHY PERIPHERAL [None]
  - BACK INJURY [None]
